FAERS Safety Report 9733798 (Version 2)
Quarter: 2013Q4

REPORT INFORMATION
  Report Type: Spontaneous
  Country: JP (occurrence: JP)
  Receive Date: 20131205
  Receipt Date: 20131205
  Transmission Date: 20140711
  Serious: Yes (Death)
  Sender: FDA-Public Use
  Company Number: PHHY2013JP137187

PATIENT
  Age: 71 Year
  Sex: Female
  Weight: 46 kg

DRUGS (9)
  1. RIFAMPICIN SANDOZ [Suspect]
     Indication: TUBERCULOUS PLEURISY
     Dosage: 450 MG, UNK
     Route: 048
     Dates: start: 20130812, end: 20130919
  2. ISCOTIN [Suspect]
     Indication: TUBERCULOUS PLEURISY
     Dosage: 300 MG, UNK
     Route: 048
     Dates: start: 20130812, end: 20130919
  3. PYRAMIDE [Suspect]
     Indication: TUBERCULOUS PLEURISY
     Dosage: 1.2 G, UNK
     Route: 048
     Dates: start: 20130812, end: 20130919
  4. AMLODIPINE BESILATE [Concomitant]
     Route: 048
  5. EBUTOL [Concomitant]
     Dosage: 750 MG, UNK
     Route: 048
     Dates: start: 20130812, end: 20130821
  6. PYRIDOXAL [Concomitant]
     Dosage: 20 MG, UNK
     Route: 048
     Dates: start: 20130812, end: 20130919
  7. CELECOX [Concomitant]
  8. GAMOFA [Concomitant]
  9. DIOVAN [Concomitant]

REACTIONS (1)
  - Hepatitis fulminant [Fatal]
